FAERS Safety Report 8001792-5 (Version None)
Quarter: 2011Q4

REPORT INFORMATION
  Report Type: 
  Country: None (occurrence: None)
  Receive Date: 20111222
  Receipt Date: 20111208
  Transmission Date: 20120403
  Serious: Yes (Death)
  Sender: FDA-Public Use
  Company Number: JP-ROCHE-795080

PATIENT
  Sex: Male

DRUGS (8)
  1. PREDNISOLONE [Concomitant]
  2. ACTEMRA [Suspect]
     Indication: CASTLEMAN'S DISEASE
  3. ZOLPIDEM [Concomitant]
  4. FAMOTIDINE D [Concomitant]
  5. MAGNESIUM SULFATE [Concomitant]
  6. LEVOTHYROXINE SODIUM [Concomitant]
  7. METHYLPREDNISOLONE SODIUM SUCCINATE [Concomitant]
  8. SULFAMETHOXAZOLE AND TRIMETHOPRIM [Concomitant]

REACTIONS (2)
  - DISEASE PROGRESSION [None]
  - LARGE CELL CARCINOMA OF THE RESPIRATORY TRACT STAGE UNSPECIFIED [None]
